FAERS Safety Report 25992693 (Version 1)
Quarter: 2025Q4

REPORT INFORMATION
  Report Type: Spontaneous
  Country: US (occurrence: US)
  Receive Date: 20251103
  Receipt Date: 20251103
  Transmission Date: 20260118
  Serious: No
  Sender: MERCK SHARP & DOHME LLC
  Company Number: US-009507513-2344187

PATIENT
  Age: 11 Month
  Sex: Female

DRUGS (5)
  1. ERTAPENEM [Suspect]
     Active Substance: ERTAPENEM
     Indication: Bacteraemia
  2. CEFTRIAXONE [Concomitant]
     Active Substance: CEFTRIAXONE
     Route: 042
  3. VANCOMYCIN [Concomitant]
     Active Substance: VANCOMYCIN
     Route: 042
  4. CLINDAMYCIN [Concomitant]
     Active Substance: CLINDAMYCIN
     Indication: Infection
     Route: 042
  5. OXACILLIN [Concomitant]
     Active Substance: OXACILLIN SODIUM
     Indication: Bacteraemia
     Route: 042

REACTIONS (1)
  - Product use in unapproved indication [Unknown]
